FAERS Safety Report 8220699-1 (Version None)
Quarter: 2012Q1

REPORT INFORMATION
  Report Type: 
  Country: None (occurrence: None)
  Receive Date: 20120307
  Receipt Date: 20110329
  Transmission Date: 20120608
  Serious: No
  Sender: FDA-Public Use
  Company Number: PHHY2011US25496

PATIENT
  Sex: Male

DRUGS (7)
  1. AFINITOR [Suspect]
     Dosage: 10 MG, QD, ORAL
     Route: 048
  2. DIOVAN [Concomitant]
  3. LIPITOR [Concomitant]
  4. RITALIN [Concomitant]
  5. HYDRALAZINE HCL [Concomitant]
  6. CLONIDINE [Concomitant]
  7. VITAMIN D [Concomitant]

REACTIONS (4)
  - FATIGUE [None]
  - CONSTIPATION [None]
  - DYSURIA [None]
  - NAUSEA [None]
